FAERS Safety Report 5732109-4 (Version None)
Quarter: 2008Q2

REPORT INFORMATION
  Report Type: 
  Country: None (occurrence: None)
  Receive Date: 20080506
  Receipt Date: 20080423
  Transmission Date: 20081010
  Serious: Yes (Other)
  Sender: FDA-Public Use
  Company Number: GB-LLY-GBS020911532

PATIENT
  Age: 52 Year
  Sex: Female

DRUGS (2)
  1. PERGOLIDE MESYLATE [Suspect]
     Indication: PARKINSON'S DISEASE
     Dosage: 4.5 MG; QD
     Dates: start: 19950101, end: 19990101
  2. CARBIDOPA AND LEVODOPA [Concomitant]

REACTIONS (4)
  - ALVEOLITIS [None]
  - AORTIC VALVE INCOMPETENCE [None]
  - COUGH [None]
  - MITRAL VALVE INCOMPETENCE [None]
